FAERS Safety Report 12162110 (Version 2)
Quarter: 2016Q2

REPORT INFORMATION
  Report Type: Spontaneous
  Country: JP (occurrence: JP)
  Receive Date: 20160309
  Receipt Date: 20160413
  Transmission Date: 20160815
  Serious: Yes (Hospitalization)
  Sender: FDA-Public Use
  Company Number: PHHY2016JP030975

PATIENT
  Sex: Female

DRUGS (1)
  1. RIVASTACH [Suspect]
     Active Substance: RIVASTIGMINE
     Indication: DEMENTIA ALZHEIMER^S TYPE
     Dosage: 4.6MG/ 9 MG PATCH DAILY (CUT INTO HALVES HAD BEEN APPLIED AS 4.5 MG PATCH)
     Route: 062

REACTIONS (2)
  - Ileus [Unknown]
  - Drug prescribing error [Unknown]
